FAERS Safety Report 10644265 (Version 1)
Quarter: 2014Q4

REPORT INFORMATION
  Report Type: Spontaneous
  Country: US (occurrence: US)
  Receive Date: 20141210
  Receipt Date: 20141210
  Transmission Date: 20150529
  Serious: No
  Sender: FDA-Public Use
  Company Number: US-TEVA-527709USA

PATIENT
  Age: 7 Decade
  Sex: Male

DRUGS (1)
  1. TREANDA [Suspect]
     Active Substance: BENDAMUSTINE HYDROCHLORIDE
     Dosage: TREANDA STANDARD DOSE; STANDARD INFUSION TIME PER LABEL

REACTIONS (1)
  - Erythema [Recovered/Resolved]
